FAERS Safety Report 9806943 (Version 2)
Quarter: 2014Q1

REPORT INFORMATION
  Report Type: Spontaneous
  Country: FR (occurrence: FR)
  Receive Date: 20140109
  Receipt Date: 20140109
  Transmission Date: 20141002
  Serious: Yes (Other)
  Sender: FDA-Public Use
  Company Number: FR-ROCHE-1197235

PATIENT
  Age: 84 Year
  Sex: Male

DRUGS (3)
  1. ZELBORAF [Suspect]
     Indication: METASTATIC MALIGNANT MELANOMA
     Route: 048
     Dates: start: 20121107, end: 20130708
  2. ZELBORAF [Suspect]
     Route: 065
  3. DETICENE [Concomitant]
     Route: 065
     Dates: start: 20120912

REACTIONS (2)
  - Precancerous skin lesion [Unknown]
  - Hyperkeratosis [Unknown]
